FAERS Safety Report 23019311 (Version 1)
Quarter: 2023Q4

REPORT INFORMATION
  Report Type: Spontaneous
  Country: US (occurrence: US)
  Receive Date: 20231003
  Receipt Date: 20231003
  Transmission Date: 20240110
  Serious: Yes (Other)
  Sender: FDA-Public Use
  Company Number: US-APOTEX-2023AP014226

PATIENT
  Age: 28 Year
  Sex: Male

DRUGS (2)
  1. DIVALPROEX SODIUM [Suspect]
     Active Substance: DIVALPROEX SODIUM
     Indication: Product used for unknown indication
     Dosage: UNK (30-40 TABLETS)
     Route: 048
  2. HALOPERIDOL [Suspect]
     Active Substance: HALOPERIDOL
     Indication: Product used for unknown indication
     Dosage: UNK (30-40 TABLETS)
     Route: 048

REACTIONS (6)
  - Suicidal behaviour [Unknown]
  - Intentional overdose [Unknown]
  - Toxicity to various agents [Unknown]
  - Drug level above therapeutic [Recovering/Resolving]
  - Hyperammonaemia [Unknown]
  - Somnolence [Unknown]
